FAERS Safety Report 7410761-5 (Version None)
Quarter: 2011Q2

REPORT INFORMATION
  Report Type: 
  Country: None (occurrence: None)
  Receive Date: 20110405
  Receipt Date: 20110321
  Transmission Date: 20111010
  Serious: Yes (Hospitalization, Other)
  Sender: FDA-Public Use
  Company Number: 2011MA002669

PATIENT
  Age: 34 Year
  Sex: Male

DRUGS (7)
  1. AMLODIPINE [Concomitant]
  2. DIAZEPAM [Concomitant]
  3. TEMAZEPAM [Concomitant]
  4. DOXAZOSIN [Concomitant]
  5. ACETAMINOPHEN AND CODEINE PHOSPHATE [Concomitant]
  6. PERINDOPRIL [Concomitant]
  7. CITALOPRAM HYDROBROMIDE [Suspect]
     Dosage: 240 MG

REACTIONS (14)
  - COMA SCALE ABNORMAL [None]
  - GENERAL PHYSICAL CONDITION ABNORMAL [None]
  - MULTIPLE DRUG OVERDOSE [None]
  - LOSS OF CONSCIOUSNESS [None]
  - AGGRESSION [None]
  - HEART RATE INCREASED [None]
  - HYPOTENSION [None]
  - HYPOXIA [None]
  - NERVOUS SYSTEM DISORDER [None]
  - CARDIOVASCULAR DISORDER [None]
  - DRUG RESISTANCE [None]
  - RENAL IMPAIRMENT [None]
  - METABOLIC ACIDOSIS [None]
  - DIALYSIS [None]
